FAERS Safety Report 12669356 (Version 1)
Quarter: 2016Q3

REPORT INFORMATION
  Report Type: Spontaneous
  Country: US (occurrence: US)
  Receive Date: 20160819
  Receipt Date: 20160819
  Transmission Date: 20161109
  Serious: No
  Sender: FDA-Public Use
  Company Number: US-BAUSCH-BL-2015-030226

PATIENT
  Age: 88 Year
  Sex: Female
  Weight: 52.21 kg

DRUGS (3)
  1. ZOVIRAX [Suspect]
     Active Substance: ACYCLOVIR
     Indication: GENITAL HERPES
     Dosage: APPLY FIVE TIMES A DAY FOR 4 DAYS
     Route: 061
     Dates: start: 201512
  2. ASPIRIN. [Concomitant]
     Active Substance: ASPIRIN
     Indication: PRODUCT USED FOR UNKNOWN INDICATION
     Route: 065
  3. PREMARIN [Concomitant]
     Active Substance: ESTROGENS, CONJUGATED
     Indication: PRODUCT USED FOR UNKNOWN INDICATION
     Route: 065

REACTIONS (5)
  - Pain [Not Recovered/Not Resolved]
  - Off label use [Unknown]
  - Therapeutic response decreased [Not Recovered/Not Resolved]
  - Genital herpes [Not Recovered/Not Resolved]
  - Condition aggravated [Not Recovered/Not Resolved]

NARRATIVE: CASE EVENT DATE: 201512
